FAERS Safety Report 17830822 (Version 2)
Quarter: 2020Q2

REPORT INFORMATION
  Report Type: Report from Study
  Country: US (occurrence: US)
  Receive Date: 20200527
  Receipt Date: 20200602
  Transmission Date: 20200714
  Serious: Yes (Hospitalization)
  Sender: FDA-Public Use
  Company Number: US-TAIHO ONCOLOGY  INC-EU-2020-01728

PATIENT
  Sex: Male
  Weight: 128 kg

DRUGS (12)
  1. PACERONE [Concomitant]
     Active Substance: AMIODARONE HYDROCHLORIDE
  2. BENADRYL [Concomitant]
     Active Substance: DIPHENHYDRAMINE HYDROCHLORIDE
     Dosage: AS NEEDED (PRN)
     Route: 048
  3. FERATAB [Concomitant]
     Route: 048
  4. LOPRESSOR [Concomitant]
     Active Substance: METOPROLOL TARTRATE
     Route: 048
  5. LONSURF [Suspect]
     Active Substance: TIPIRACIL HYDROCHLORIDE\TRIFLURIDINE
     Indication: COLON CANCER METASTATIC
     Dosage: CYCLE 1-8. DOSE AND FREQUENCY UNKNOWN.
     Route: 048
     Dates: start: 201907, end: 202005
  6. NEURONTIN [Concomitant]
     Active Substance: GABAPENTIN
  7. ZOFRAN [Concomitant]
     Active Substance: ONDANSETRON HYDROCHLORIDE
     Route: 048
  8. TRESIBA [Concomitant]
     Active Substance: INSULIN DEGLUDEC
  9. COMPAZINE [Concomitant]
     Active Substance: PROCHLORPERAZINE MALEATE
     Dosage: AS NEEDED (PRN)
     Route: 048
  10. NOVOLOG [Concomitant]
     Active Substance: INSULIN ASPART
     Route: 058
  11. HYTRIN [Concomitant]
     Active Substance: TERAZOSIN HYDROCHLORIDE
     Route: 048
  12. ZYLOPRIM [Concomitant]
     Active Substance: ALLOPURINOL

REACTIONS (1)
  - Metastases to central nervous system [Recovering/Resolving]
